FAERS Safety Report 25051252 (Version 1)
Quarter: 2025Q1

REPORT INFORMATION
  Report Type: Spontaneous
  Country: JP (occurrence: None)
  Receive Date: 20250307
  Receipt Date: 20250307
  Transmission Date: 20250409
  Serious: Yes (Other)
  Sender: INCYTE
  Company Number: JP-002147023-NVSJ2025JP002723

PATIENT
  Age: 58 Year

DRUGS (1)
  1. RUXOLITINIB [Suspect]
     Active Substance: RUXOLITINIB
     Indication: Graft versus host disease

REACTIONS (3)
  - Cytomegalovirus enterocolitis [Unknown]
  - Organising pneumonia [Unknown]
  - Pneumocystis jirovecii pneumonia [Unknown]
